FAERS Safety Report 13166745 (Version 1)
Quarter: 2017Q1

REPORT INFORMATION
  Report Type: Report from Study
  Country: CA (occurrence: CA)
  Receive Date: 20170131
  Receipt Date: 20170131
  Transmission Date: 20170428
  Serious: Yes (Hospitalization, Other)
  Sender: FDA-Public Use
  Company Number: CA-AMGEN-CANSL2017013555

PATIENT
  Age: 54 Year
  Sex: Female

DRUGS (12)
  1. RAMIPRIL. [Concomitant]
     Active Substance: RAMIPRIL
  2. VITAMIN D [Concomitant]
     Active Substance: CHOLECALCIFEROL
  3. DILAUDID [Concomitant]
     Active Substance: HYDROMORPHONE HYDROCHLORIDE
  4. ASA [Concomitant]
     Active Substance: ASPIRIN
     Dosage: UNK
     Dates: end: 201701
  5. SYNTHROID [Concomitant]
     Active Substance: LEVOTHYROXINE SODIUM
  6. METOPROLOL. [Concomitant]
     Active Substance: METOPROLOL
  7. ELMIRON [Concomitant]
     Active Substance: PENTOSAN POLYSULFATE SODIUM
  8. CRESTOR [Concomitant]
     Active Substance: ROSUVASTATIN CALCIUM
  9. REPATHA [Suspect]
     Active Substance: EVOLOCUMAB
     Indication: TYPE IIA HYPERLIPIDAEMIA
     Dosage: 140 MG/ML, UNK
     Route: 065
     Dates: start: 20160218
  10. MAGNESIUM [Concomitant]
     Active Substance: MAGNESIUM
  11. EZETROL [Concomitant]
     Active Substance: EZETIMIBE
  12. PANTOPRAZOLE MAGNESIUM [Concomitant]
     Active Substance: PANTOPRAZOLE MAGNESIUM

REACTIONS (1)
  - Gallbladder operation [Recovering/Resolving]

NARRATIVE: CASE EVENT DATE: 201701
